FAERS Safety Report 8523413-5 (Version None)
Quarter: 2012Q3

REPORT INFORMATION
  Report Type: 
  Country: None (occurrence: None)
  Receive Date: 20120720
  Receipt Date: 20100907
  Transmission Date: 20120928
  Serious: Yes (Hospitalization, Other)
  Sender: FDA-Public Use
  Company Number: US-BAYER-201017417NA

PATIENT
  Age: 36 Year
  Sex: Female
  Weight: 91 kg

DRUGS (21)
  1. LISINOPRIL [Concomitant]
     Dosage: 5 MG (DAILY DOSE), ,
  2. LYRICA [Concomitant]
     Dosage: 150 MG (DAILY DOSE), BID,
  3. LOPRESSOR [Concomitant]
     Dosage: 50 MG (DAILY DOSE), BID,
  4. SIMVASTATIN [Concomitant]
     Dosage: 40 MG (DAILY DOSE), ,
  5. YASMIN [Suspect]
     Indication: ENDOMETRIOSIS
  6. VICODIN [Concomitant]
     Indication: OPTIC NEURITIS
     Route: 048
  7. NITROGLYCERIN [Concomitant]
  8. FISH OIL [Concomitant]
  9. AMITRIPTYLINE HCL [Concomitant]
  10. YASMIN [Suspect]
     Indication: MENSTRUATION IRREGULAR
     Dosage: UNK UNK, QD
     Route: 048
     Dates: start: 20060701, end: 20081118
  11. ASPIRIN [Concomitant]
     Dosage: 325 MG (DAILY DOSE), ,
  12. LUNESTA [Concomitant]
  13. IBUPROFEN [Concomitant]
  14. ZOCOR [Concomitant]
     Dosage: 40 MG (DAILY DOSE), ,
  15. DROSPIRENONE AND ETHINYL ESTRADIOL [Suspect]
     Indication: MENSTRUATION IRREGULAR
     Route: 048
     Dates: start: 20060701, end: 20090615
  16. COPAXONE [Concomitant]
     Dosage: 20 MG (DAILY DOSE), ,
  17. METOPROLOL SUCCINATE [Concomitant]
  18. AMBIEN [Concomitant]
  19. DROSPIRENONE AND ETHINYL ESTRADIOL [Suspect]
     Indication: ENDOMETRIOSIS
  20. LEVOTHYROXINE SODIUM [Concomitant]
     Indication: HYPOTHYROIDISM
  21. TRAMADOL HYDROCHLORIDE [Concomitant]

REACTIONS (14)
  - EYE PAIN [None]
  - MYOCARDIAL INFARCTION [None]
  - FEELING OF BODY TEMPERATURE CHANGE [None]
  - SINUSITIS [None]
  - BLINDNESS [None]
  - DYSPNOEA [None]
  - VISUAL ACUITY REDUCED [None]
  - CHEST DISCOMFORT [None]
  - COUGH [None]
  - FACIAL PAIN [None]
  - CHEST PAIN [None]
  - OPTIC NEUROPATHY [None]
  - NAUSEA [None]
  - HEADACHE [None]
